FAERS Safety Report 13905394 (Version 1)
Quarter: 2017Q3

REPORT INFORMATION
  Report Type: Spontaneous
  Country: US (occurrence: US)
  Receive Date: 20170825
  Receipt Date: 20170825
  Transmission Date: 20171127
  Serious: No
  Sender: FDA-Public Use
  Company Number: US-TEVA-726549ACC

PATIENT
  Age: 80 Year
  Sex: Female
  Weight: 52.21 kg

DRUGS (2)
  1. ALENDTAB-A [Suspect]
     Active Substance: ALENDRONIC ACID
     Dates: start: 1999
  2. ALENDTAB-A [Suspect]
     Active Substance: ALENDRONIC ACID
     Indication: OSTEOPENIA
     Dates: start: 20150801, end: 20161023

REACTIONS (3)
  - Diarrhoea [Recovered/Resolved]
  - Flatulence [Recovered/Resolved]
  - Gastrointestinal pain [Recovered/Resolved]

NARRATIVE: CASE EVENT DATE: 20161009
